FAERS Safety Report 23679660 (Version 1)
Quarter: 2024Q1

REPORT INFORMATION
  Report Type: Spontaneous
  Country: US (occurrence: US)
  Receive Date: 20240327
  Receipt Date: 20240327
  Transmission Date: 20240410
  Serious: No
  Sender: FDA-Public Use
  Company Number: US-009507513-2403USA004397

PATIENT
  Age: 5 Year
  Sex: Male

DRUGS (3)
  1. NOXAFIL [Suspect]
     Active Substance: POSACONAZOLE
     Indication: Rhinocerebral mucormycosis
     Dosage: 16 DAYS
     Route: 048
     Dates: start: 2014
  2. NOXAFIL [Suspect]
     Active Substance: POSACONAZOLE
     Dosage: 399 DAYS
     Route: 048
  3. AMPHOTERICIN B [Concomitant]
     Active Substance: AMPHOTERICIN B
     Indication: Rhinocerebral mucormycosis
     Dosage: 16 DAYS
     Dates: start: 2014

REACTIONS (1)
  - Product use in unapproved indication [Unknown]

NARRATIVE: CASE EVENT DATE: 20140101
